FAERS Safety Report 15793174 (Version 1)
Quarter: 2019Q1

REPORT INFORMATION
  Report Type: Other
  Country: NL (occurrence: NL)
  Receive Date: 20190107
  Receipt Date: 20190107
  Transmission Date: 20190417
  Serious: Yes (Hospitalization, Other)
  Sender: FDA-Public Use
  Company Number: NL-APOTEX-2018AP028562

PATIENT
  Age: 54 Year
  Sex: Male

DRUGS (7)
  1. DASATINIB. [Suspect]
     Active Substance: DASATINIB
     Dosage: DOSE WAS LATER REDUCED TO 40MG ONCE A DAY
     Route: 065
  2. BOSUTINIB [Suspect]
     Active Substance: BOSUTINIB
     Dosage: 300 MG, QD
     Route: 065
  3. NILOTINIB [Suspect]
     Active Substance: NILOTINIB
     Dosage: UNK, UNKNOWN
     Route: 065
     Dates: start: 201307
  4. BOSUTINIB [Suspect]
     Active Substance: BOSUTINIB
     Indication: CHRONIC MYELOID LEUKAEMIA
     Dosage: DOSE WAS LATER REDUCED TO 300MG ONCE A DAY
     Route: 065
  5. IMATINIB. [Suspect]
     Active Substance: IMATINIB MESYLATE
     Indication: CHRONIC MYELOID LEUKAEMIA
     Dosage: 400 MG, QD
     Route: 065
  6. DASATINIB. [Suspect]
     Active Substance: DASATINIB
     Indication: CHRONIC MYELOID LEUKAEMIA
     Dosage: 40 MG, QD
     Route: 065
  7. NILOTINIB [Suspect]
     Active Substance: NILOTINIB
     Indication: CHRONIC MYELOID LEUKAEMIA
     Dosage: 300 MG, BID
     Route: 065
     Dates: start: 201302

REACTIONS (10)
  - Ventricular fibrillation [Unknown]
  - Angina pectoris [Unknown]
  - Myocardial infarction [Unknown]
  - Pleural effusion [Unknown]
  - Fall [Unknown]
  - Circulatory collapse [Unknown]
  - Chest pain [Unknown]
  - Drug ineffective [Unknown]
  - Electrocardiogram ST segment elevation [Unknown]
  - Arteriospasm coronary [Unknown]

NARRATIVE: CASE EVENT DATE: 201007
